FAERS Safety Report 13293742 (Version 2)
Quarter: 2017Q1

REPORT INFORMATION
  Report Type: Spontaneous
  Country: BR (occurrence: BR)
  Receive Date: 20170303
  Receipt Date: 20170308
  Transmission Date: 20170428
  Serious: Yes (Life-Threatening, Hospitalization, Other)
  Sender: FDA-Public Use
  Company Number: BR-ALEXION PHARMACEUTICALS INC.-A201702118

PATIENT
  Age: 10 Year
  Sex: Male

DRUGS (1)
  1. SOLIRIS [Suspect]
     Active Substance: ECULIZUMAB
     Indication: HAEMOLYTIC URAEMIC SYNDROME
     Dosage: 600 MG, QW
     Route: 042
     Dates: start: 20170221

REACTIONS (3)
  - Haemolysis [Not Recovered/Not Resolved]
  - Seizure [Not Recovered/Not Resolved]
  - Renal impairment [Not Recovered/Not Resolved]

NARRATIVE: CASE EVENT DATE: 20170222
